FAERS Safety Report 7221961-1 (Version None)
Quarter: 2011Q1

REPORT INFORMATION
  Report Type: 
  Country: None (occurrence: None)
  Receive Date: 20110112
  Receipt Date: 20110105
  Transmission Date: 20110831
  Serious: Yes (Other)
  Sender: FDA-Public Use
  Company Number: B0692985A

PATIENT
  Sex: Female

DRUGS (1)
  1. ZELITREX [Suspect]
     Indication: HERPES VIRUS INFECTION
     Route: 065

REACTIONS (6)
  - EYE DISORDER [None]
  - VISUAL IMPAIRMENT [None]
  - DRUG RESISTANCE [None]
  - AURA [None]
  - VISUAL ACUITY REDUCED [None]
  - DRUG INEFFECTIVE [None]
